FAERS Safety Report 23752025 (Version 1)
Quarter: 2024Q2

REPORT INFORMATION
  Report Type: Spontaneous
  Country: US (occurrence: US)
  Receive Date: 20240417
  Receipt Date: 20240417
  Transmission Date: 20240716
  Serious: Yes (Other)
  Sender: FDA-Public Use
  Company Number: US-INCYTE CORPORATION-2024IN003851

PATIENT

DRUGS (1)
  1. JAKAFI [Suspect]
     Active Substance: RUXOLITINIB
     Indication: Crohn^s disease
     Dosage: 7.5 MILLIGRAM, BID
     Route: 048

REACTIONS (3)
  - Gastrointestinal disorder [Unknown]
  - Wrong technique in product usage process [Unknown]
  - Off label use [Unknown]
